FAERS Safety Report 14249371 (Version 1)
Quarter: 2017Q4

REPORT INFORMATION
  Report Type: Spontaneous
  Country: US (occurrence: US)
  Receive Date: 20171204
  Receipt Date: 20171204
  Transmission Date: 20180321
  Serious: No
  Sender: FDA-Public Use
  Company Number: US-ENDO PHARMACEUTICALS INC-2017-005359

PATIENT
  Sex: Male
  Weight: 86.17 kg

DRUGS (5)
  1. LIPITOR [Concomitant]
     Active Substance: ATORVASTATIN CALCIUM
     Indication: PRODUCT USED FOR UNKNOWN INDICATION
  2. XIAFLEX [Suspect]
     Active Substance: COLLAGENASE CLOSTRIDIUM HISTOLYTICUM
     Dosage: UNK, FIRST INJECTION, SECOND CYCLE
     Route: 026
     Dates: start: 2017
  3. XIAFLEX [Suspect]
     Active Substance: COLLAGENASE CLOSTRIDIUM HISTOLYTICUM
     Dosage: UNK, FIRST INJECTION, SECOND CYCLE
     Route: 026
     Dates: start: 201706
  4. XIAFLEX [Suspect]
     Active Substance: COLLAGENASE CLOSTRIDIUM HISTOLYTICUM
     Indication: PEYRONIE^S DISEASE
     Dosage: UNK, SECOND INJECTION, SECOND CYCLE
     Route: 026
     Dates: start: 2017
  5. XIAFLEX [Suspect]
     Active Substance: COLLAGENASE CLOSTRIDIUM HISTOLYTICUM
     Dosage: UNK, SECOND INJECTION, FIRST CYCLE
     Route: 026
     Dates: start: 201706

REACTIONS (3)
  - Drug ineffective [Not Recovered/Not Resolved]
  - Penile contusion [Recovered/Resolved]
  - Penile swelling [Recovered/Resolved]

NARRATIVE: CASE EVENT DATE: 2017
